FAERS Safety Report 16189550 (Version 1)
Quarter: 2019Q2

REPORT INFORMATION
  Report Type: Spontaneous
  Country: US (occurrence: US)
  Receive Date: 20190412
  Receipt Date: 20190412
  Transmission Date: 20190711
  Serious: No
  Sender: FDA-Public Use
  Company Number: US-PFIZER INC-2019141193

PATIENT
  Age: 60 Year
  Sex: Female
  Weight: 45.35 kg

DRUGS (2)
  1. LYRICA [Suspect]
     Active Substance: PREGABALIN
     Indication: CERVICAL SPINAL STENOSIS
     Dosage: 75 MG, 4X/DAY (THREE 25 MG CAPSULES 4 TIMES DAILY)
     Route: 048
     Dates: start: 20190326
  2. LYRICA [Suspect]
     Active Substance: PREGABALIN
     Dosage: 75 MG, 2X/DAY (ONE IN THE AFTERNOON AND 2 AN HOUR BEFORE BEDTIME)

REACTIONS (9)
  - Abdominal discomfort [Unknown]
  - Feeling abnormal [Recovering/Resolving]
  - Visual impairment [Recovering/Resolving]
  - Intentional product use issue [Unknown]
  - Anxiety [Unknown]
  - Product use issue [Unknown]
  - Nervousness [Unknown]
  - Vision blurred [Recovering/Resolving]
  - Withdrawal syndrome [Unknown]

NARRATIVE: CASE EVENT DATE: 201901
